FAERS Safety Report 6674068-6 (Version None)
Quarter: 2010Q2

REPORT INFORMATION
  Report Type: 
  Country: None (occurrence: None)
  Receive Date: 20100407
  Receipt Date: 20100323
  Transmission Date: 20101027
  Serious: Yes (Hospitalization, Other)
  Sender: FDA-Public Use
  Company Number: 2010SCPR000458

PATIENT
  Age: 37 Year
  Sex: Male

DRUGS (3)
  1. TRAMADOL HCL [Suspect]
     Indication: DRUG USE FOR UNKNOWN INDICATION
     Dosage: 50 MG, 8 TABLETS 3 TIMES A DAY, ORAL
     Route: 048
  2. TRAMADOL HCL [Suspect]
     Indication: JOINT SPRAIN
     Dosage: 50 MG, 8 TABLETS 3 TIMES A DAY, ORAL
     Route: 048
  3. NALTREXONE HYDROCHLORIDE [Suspect]
     Dosage: 50 MG

REACTIONS (25)
  - ANXIETY [None]
  - DIARRHOEA [None]
  - DISTRACTIBILITY [None]
  - DRUG DEPENDENCE [None]
  - EUPHORIC MOOD [None]
  - FATIGUE [None]
  - FEELING ABNORMAL [None]
  - HEADACHE [None]
  - HYPERHIDROSIS [None]
  - IMPAIRED WORK ABILITY [None]
  - INCORRECT DOSE ADMINISTERED [None]
  - INJURY [None]
  - LACRIMATION INCREASED [None]
  - MALAISE [None]
  - MIDDLE INSOMNIA [None]
  - MUSCULOSKELETAL STIFFNESS [None]
  - NAUSEA [None]
  - PAIN [None]
  - PSYCHOMOTOR RETARDATION [None]
  - RHINORRHOEA [None]
  - SELF-MEDICATION [None]
  - SLEEP DISORDER [None]
  - SNEEZING [None]
  - TREMOR [None]
  - YAWNING [None]
